FAERS Safety Report 24922695 (Version 5)
Quarter: 2025Q2

REPORT INFORMATION
  Report Type: Report from Study
  Country: US (occurrence: US)
  Receive Date: 20250204
  Receipt Date: 20250508
  Transmission Date: 20250716
  Serious: Yes (Hospitalization)
  Sender: SUNOVION
  Company Number: US-SMPA-2025SPA000836AA

PATIENT

DRUGS (1)
  1. ORGOVYX [Suspect]
     Active Substance: RELUGOLIX
     Indication: Prostate cancer
     Dosage: 120 MG, QD
     Route: 048
     Dates: start: 20250108

REACTIONS (9)
  - Skin ulcer [Unknown]
  - Sexual life impairment [Unknown]
  - Mood swings [Unknown]
  - Hot flush [Unknown]
  - Insomnia [Unknown]
  - Fatigue [Unknown]
  - Arthralgia [Unknown]
  - Diarrhoea [Unknown]
  - Incorrect dose administered [Unknown]
